FAERS Safety Report 5704451-4 (Version None)
Quarter: 2008Q2

REPORT INFORMATION
  Report Type: 
  Country: None (occurrence: None)
  Receive Date: 20080411
  Receipt Date: 20080411
  Transmission Date: 20081010
  Serious: No
  Sender: FDA-Public Use
  Company Number: None

PATIENT
  Age: 67 Year
  Sex: Male
  Weight: 78.0187 kg

DRUGS (1)
  1. CREST PRO HEALTH TOOTHPASTE [Suspect]
     Indication: DENTAL CARE
     Dates: start: 20071207, end: 20080409

REACTIONS (1)
  - ORAL MUCOSAL EXFOLIATION [None]
